FAERS Safety Report 4328626-4 (Version None)
Quarter: 2004Q2

REPORT INFORMATION
  Report Type: 
  Country: None (occurrence: None)
  Receive Date: 20040401
  Receipt Date: 20040318
  Transmission Date: 20050107
  Serious: Yes (Hospitalization)
  Sender: FDA-Public Use
  Company Number: 200412222US

PATIENT
  Age: 62 Year
  Sex: Male

DRUGS (2)
  1. TAXOTERE [Suspect]
     Indication: PROSTATE CANCER
     Dosage: DOSE: UNK
     Dates: end: 20030821
  2. DEXAMETHASONE [Suspect]
     Indication: PROSTATE CANCER

REACTIONS (1)
  - HYPERGLYCAEMIA [None]
